FAERS Safety Report 9419495 (Version 2)
Quarter: 2013Q3

REPORT INFORMATION
  Report Type: Spontaneous
  Country: US (occurrence: US)
  Receive Date: 20130725
  Receipt Date: 20130820
  Transmission Date: 20140515
  Serious: Yes (Disabling, Other)
  Sender: FDA-Public Use
  Company Number: US-ASTRAZENECA-2013SE54966

PATIENT
  Age: 18690 Day
  Sex: Female
  Weight: 78.9 kg

DRUGS (8)
  1. TOPROL XL [Suspect]
     Indication: STENT PLACEMENT
     Route: 048
     Dates: start: 20130604
  2. TOPROL XL [Suspect]
     Indication: HYPERTENSION
     Route: 048
     Dates: start: 20130604
  3. BRILINTA [Suspect]
     Indication: CHEST PAIN
     Dosage: 180 MG, LOADING DOSE
     Route: 048
  4. BRILINTA [Suspect]
     Indication: STENT PLACEMENT
     Dosage: 180 MG, LOADING DOSE
     Route: 048
  5. BRILINTA [Suspect]
     Indication: CHEST PAIN
     Route: 048
     Dates: start: 20130603, end: 20130607
  6. BRILINTA [Suspect]
     Indication: STENT PLACEMENT
     Route: 048
     Dates: start: 20130603, end: 20130607
  7. ASPIRIN [Suspect]
     Indication: ANALGESIC INTERVENTION SUPPORTIVE THERAPY
     Route: 065
     Dates: start: 20130603
  8. LIPITOR [Concomitant]
     Indication: STENT PLACEMENT

REACTIONS (3)
  - Dyspnoea exertional [Recovered/Resolved]
  - Gait disturbance [Recovered/Resolved]
  - Insomnia [Recovered/Resolved]
